FAERS Safety Report 8971158 (Version 1)
Quarter: 2012Q4

REPORT INFORMATION
  Report Type: 
  Country: GB (occurrence: GB)
  Receive Date: 20121218
  Receipt Date: 20121218
  Transmission Date: 20130627
  Serious: Yes (Other)
  Sender: FDA-Public Use
  Company Number: GB-PFIZER INC-2012314829

PATIENT
  Age: 48 Year
  Sex: Female

DRUGS (1)
  1. PREMIQUE [Suspect]
     Indication: EARLY MENOPAUSE

REACTIONS (1)
  - Haemorrhage [Unknown]
